FAERS Safety Report 6420070-9 (Version None)
Quarter: 2009Q4

REPORT INFORMATION
  Report Type: 
  Country: None (occurrence: None)
  Receive Date: 20091029
  Receipt Date: 20091022
  Transmission Date: 20100525
  Serious: Yes (Other)
  Sender: FDA-Public Use
  Company Number: AU-PFIZER INC-2009265049

PATIENT

DRUGS (1)
  1. DEPO-PROVERA [Suspect]
     Indication: CONTRACEPTION
     Dosage: UNK
     Dates: start: 19980101, end: 20010501

REACTIONS (10)
  - AMENORRHOEA [None]
  - EMOTIONAL DISTRESS [None]
  - FIBROMYALGIA [None]
  - HEADACHE [None]
  - HEPATIC LESION [None]
  - INFERTILITY [None]
  - PAIN [None]
  - POLYCYSTIC OVARIES [None]
  - TYPE 2 DIABETES MELLITUS [None]
  - WEIGHT INCREASED [None]
